FAERS Safety Report 18294396 (Version 1)
Quarter: 2020Q3

REPORT INFORMATION
  Report Type: Spontaneous
  Country: US (occurrence: US)
  Receive Date: 20200922
  Receipt Date: 20200922
  Transmission Date: 20201103
  Serious: Yes (Other)
  Sender: FDA-Public Use
  Company Number: None

PATIENT
  Age: 42 Year
  Sex: Female
  Weight: 62.1 kg

DRUGS (1)
  1. VICKS SINEX 12 HOUR DECONGESTANT ULTRA FINE MIST [Suspect]
     Active Substance: OXYMETAZOLINE HYDROCHLORIDE
     Indication: SINUS CONGESTION
     Dosage: ?          QUANTITY:2 SPRAY(S);?
     Route: 055
     Dates: start: 20200920, end: 20200920

REACTIONS (1)
  - Anosmia [None]

NARRATIVE: CASE EVENT DATE: 20200920
